FAERS Safety Report 4624259-0 (Version None)
Quarter: 2005Q1

REPORT INFORMATION
  Report Type: 
  Country: None (occurrence: None)
  Receive Date: 20050330
  Receipt Date: 20050330
  Transmission Date: 20050727
  Serious: Yes (Other)
  Sender: FDA-Public Use
  Company Number: None

PATIENT
  Age: 89 Year
  Sex: Male

DRUGS (1)
  1. FLOMAX [Suspect]
     Indication: URINARY RETENTION
     Dosage: P.O.
     Route: 048

REACTIONS (3)
  - IRIDOCELE [None]
  - IRIS DISORDER [None]
  - PROCEDURAL COMPLICATION [None]
